FAERS Safety Report 12409753 (Version 3)
Quarter: 2016Q4

REPORT INFORMATION
  Report Type: Spontaneous
  Country: US (occurrence: US)
  Receive Date: 20160527
  Receipt Date: 20161215
  Transmission Date: 20170207
  Serious: Yes (Other)
  Sender: FDA-Public Use
  Company Number: US-ROCHE-1764342

PATIENT
  Sex: Male

DRUGS (2)
  1. XELODA [Suspect]
     Active Substance: CAPECITABINE
     Indication: PRODUCT USED FOR UNKNOWN INDICATION
     Dosage: FOR 7 DAYS
     Route: 048
     Dates: start: 20160114
  2. XELODA [Suspect]
     Active Substance: CAPECITABINE
     Dosage: AM
     Route: 048
     Dates: start: 201601

REACTIONS (3)
  - Skin disorder [Not Recovered/Not Resolved]
  - Rash macular [Unknown]
  - Thermal burn [Recovering/Resolving]
